FAERS Safety Report 6433520-9 (Version None)
Quarter: 2009Q4

REPORT INFORMATION
  Report Type: 
  Country: None (occurrence: None)
  Receive Date: 20091110
  Receipt Date: 20091030
  Transmission Date: 20100525
  Serious: Yes (Other)
  Sender: FDA-Public Use
  Company Number: US-BIOGENIDEC-2009BI033881

PATIENT
  Age: 48 Year
  Sex: Male

DRUGS (8)
  1. TYSABRI [Suspect]
     Indication: MULTIPLE SCLEROSIS
     Route: 042
     Dates: start: 20080919, end: 20091030
  2. AMBIEN [Concomitant]
  3. WELLBUTRIN [Concomitant]
  4. PROVIGIL [Concomitant]
  5. LIPITOR [Concomitant]
  6. TRAZODONE HCL [Concomitant]
  7. LORAZEPAM [Concomitant]
  8. ADVIL [Concomitant]

REACTIONS (2)
  - MUSCULAR WEAKNESS [None]
  - SQUAMOUS CELL CARCINOMA OF SKIN [None]
